FAERS Safety Report 9992569 (Version 1)
Quarter: 2014Q1

REPORT INFORMATION
  Report Type: Spontaneous
  Country: PH (occurrence: PH)
  Receive Date: 20140310
  Receipt Date: 20140310
  Transmission Date: 20141002
  Serious: Yes (Hospitalization)
  Sender: FDA-Public Use
  Company Number: PH-B.I. PHARMACEUTICALS,INC./RIDGEFIELD-2014-BI-09778RP

PATIENT
  Age: 75 Year
  Sex: Male

DRUGS (4)
  1. PRADAXA [Suspect]
     Indication: CEREBROVASCULAR ACCIDENT PROPHYLAXIS
     Dosage: 15.7143 MG
     Route: 048
     Dates: start: 201402, end: 201402
  2. PRADAXA [Suspect]
     Indication: ATRIAL FIBRILLATION
  3. FELODIPINE [Concomitant]
     Route: 065
  4. SYMBICORT [Concomitant]
     Route: 065

REACTIONS (1)
  - Cerebrovascular accident [Not Recovered/Not Resolved]
